FAERS Safety Report 6410285-8 (Version None)
Quarter: 2009Q4

REPORT INFORMATION
  Report Type: 
  Country: None (occurrence: None)
  Receive Date: 20091022
  Receipt Date: 20091016
  Transmission Date: 20100525
  Serious: Yes (Hospitalization)
  Sender: FDA-Public Use
  Company Number: B0581687A

PATIENT
  Sex: Male

DRUGS (7)
  1. LAPATINIB [Suspect]
     Dosage: 24.75MG PER DAY
     Route: 048
     Dates: start: 20090526
  2. DOCETAXEL [Suspect]
     Dosage: 270MG EVERY 3 WEEKS
     Route: 042
     Dates: start: 20090526
  3. METOCLOPRAMIDE [Concomitant]
  4. PANTOPRAZOL [Concomitant]
  5. LOPERAMIDE [Concomitant]
  6. PARACETAMOL [Concomitant]
  7. OSTAC [Concomitant]
     Dosage: 520MG TWICE PER DAY

REACTIONS (4)
  - DYSPNOEA [None]
  - INFECTION [None]
  - PNEUMOCYSTIS JIROVECI PNEUMONIA [None]
  - PYREXIA [None]
